FAERS Safety Report 11463513 (Version 1)
Quarter: 2015Q3

REPORT INFORMATION
  Report Type: Spontaneous
  Country: US (occurrence: US)
  Receive Date: 20150831
  Receipt Date: 20150831
  Transmission Date: 20151125
  Serious: No
  Sender: FDA-Public Use
  Company Number: US-ELI_LILLY_AND_COMPANY-US201103006664

PATIENT
  Age: 35 Year
  Sex: Male

DRUGS (2)
  1. CYMBALTA [Suspect]
     Active Substance: DULOXETINE HYDROCHLORIDE
     Dosage: 40 MG, UNK
  2. CYMBALTA [Suspect]
     Active Substance: DULOXETINE HYDROCHLORIDE
     Indication: OBSESSIVE-COMPULSIVE DISORDER
     Dosage: 60 MG, UNK
     Dates: start: 2009

REACTIONS (3)
  - Sexual dysfunction [Unknown]
  - Off label use [Not Recovered/Not Resolved]
  - Blunted affect [Unknown]

NARRATIVE: CASE EVENT DATE: 2009
